FAERS Safety Report 24989436 (Version 1)
Quarter: 2025Q1

REPORT INFORMATION
  Report Type: Spontaneous
  Country: CA (occurrence: None)
  Receive Date: 20250220
  Receipt Date: 20250220
  Transmission Date: 20250409
  Serious: Yes (Other)
  Sender: ORION
  Company Number: CA-PFIZER INC-202500034730

PATIENT
  Age: 3 Year
  Sex: Female

DRUGS (2)
  1. METHOTREXATE [Suspect]
     Active Substance: METHOTREXATE
     Indication: Acute lymphocytic leukaemia
  2. METHOTREXATE [Suspect]
     Active Substance: METHOTREXATE
     Indication: Acute lymphocytic leukaemia

REACTIONS (4)
  - Focal dyscognitive seizures [Recovered/Resolved]
  - Neurotoxicity [Recovered/Resolved]
  - Partial seizures with secondary generalisation [Recovered/Resolved]
  - Status epilepticus [Recovered/Resolved]
